FAERS Safety Report 6583485-4 (Version None)
Quarter: 2010Q1

REPORT INFORMATION
  Report Type: 
  Country: None (occurrence: None)
  Receive Date: 20100216
  Receipt Date: 20100202
  Transmission Date: 20100710
  Serious: Yes (Hospitalization, Other)
  Sender: FDA-Public Use
  Company Number: DE-MYLANLABS-2009S1003479

PATIENT
  Age: 46 Year
  Sex: Female
  Weight: 74.3 kg

DRUGS (3)
  1. IBUPROFEN [Suspect]
     Indication: PAIN
     Route: 048
     Dates: start: 20080706, end: 20080717
  2. NOVALGIN [Suspect]
     Indication: PYREXIA
     Route: 048
     Dates: start: 20080712, end: 20080713
  3. DOXYCYCLINE [Concomitant]
     Indication: ARTHROPOD BITE
     Route: 048
     Dates: start: 20080717, end: 20080717

REACTIONS (1)
  - HEPATIC ENZYME INCREASED [None]
